FAERS Safety Report 18051054 (Version 2)
Quarter: 2020Q3

REPORT INFORMATION
  Report Type: Spontaneous
  Country: DE (occurrence: DE)
  Receive Date: 20200721
  Receipt Date: 20200811
  Transmission Date: 20201103
  Serious: Yes (Other)
  Sender: FDA-Public Use
  Company Number: DE-BAYER-2020-139282

PATIENT
  Age: 30 Year
  Sex: Female

DRUGS (2)
  1. ARTOTEC [Concomitant]
     Active Substance: DICLOFENAC SODIUM\MISOPROSTOL
  2. MIRENA [Suspect]
     Active Substance: LEVONORGESTREL
     Indication: CONTRACEPTION
     Dosage: 20 ?G/24H CONTINOUSLY
     Route: 015

REACTIONS (2)
  - Complication of device insertion [Recovered/Resolved]
  - Epilepsy [Recovered/Resolved]
